FAERS Safety Report 8285025 (Version 3)
Quarter: 2013Q4

REPORT INFORMATION
  Report Type: Spontaneous
  Country: US (occurrence: US)
  Receive Date: 20111212
  Receipt Date: 20131118
  Transmission Date: 20140711
  Serious: Yes (Congenital Anomaly, Other)
  Sender: FDA-Public Use
  Company Number: US-PFIZER INC-2011297709

PATIENT
  Sex: Male

DRUGS (11)
  1. EFFEXOR [Suspect]
     Indication: POSTPARTUM DEPRESSION
     Dosage: 150 MG, UNK
     Route: 064
     Dates: end: 200411
  2. EFFEXOR [Suspect]
     Dosage: 112.5 MG, UNK
     Route: 064
     Dates: start: 200411
  3. EFFEXOR [Suspect]
     Dosage: 75 MG, UNK
     Route: 064
     Dates: end: 20050915
  4. EFFEXOR [Suspect]
     Dosage: 37.5 MG, UNK
     Route: 064
     Dates: start: 20050915, end: 200512
  5. EFFEXOR [Suspect]
     Dosage: 35 MG, UNK
     Route: 064
  6. GUAIFENESIN [Concomitant]
     Indication: DYSPNOEA
     Dosage: UNK
     Route: 064
  7. GUAIFENESIN [Concomitant]
     Indication: NASAL CONGESTION
  8. PSEUDOEPHEDRINE [Concomitant]
     Indication: DYSPNOEA
     Dosage: UNK
     Route: 064
  9. PSEUDOEPHEDRINE [Concomitant]
     Indication: NASAL CONGESTION
  10. NASAL SALINE [Concomitant]
     Indication: NASAL CONGESTION
     Dosage: UNK
     Route: 064
  11. PRENATAL VITAMINS [Concomitant]
     Dosage: UNK
     Route: 064

REACTIONS (5)
  - Bicuspid aortic valve [Unknown]
  - Electrocardiogram QT prolonged [Unknown]
  - Congenital anomaly [Unknown]
  - Maternal exposure during pregnancy [Unknown]
  - Coarctation of the aorta [Unknown]
